FAERS Safety Report 5735799-5 (Version None)
Quarter: 2008Q2

REPORT INFORMATION
  Report Type: 
  Country: None (occurrence: None)
  Receive Date: 20080508
  Receipt Date: 20080508
  Transmission Date: 20081010
  Serious: Yes (Life-Threatening, Hospitalization)
  Sender: FDA-Public Use
  Company Number: None

PATIENT
  Sex: Female

DRUGS (1)
  1. FOCALIN [Suspect]
     Dosage: 20 MG QDAY PO
     Route: 048

REACTIONS (1)
  - STEVENS-JOHNSON SYNDROME [None]
